FAERS Safety Report 20068249 (Version 1)
Quarter: 2021Q4

REPORT INFORMATION
  Report Type: Spontaneous
  Country: US (occurrence: None)
  Receive Date: 20211112
  Receipt Date: 20211112
  Transmission Date: 20220303
  Serious: Yes (Death)
  Sender: FDA-Public Use
  Company Number: None

PATIENT
  Age: 90 Year
  Sex: Male
  Weight: 72 kg

DRUGS (16)
  1. METOPROLOL TARTRATE [Suspect]
     Active Substance: METOPROLOL TARTRATE
     Indication: Hypertension
     Dosage: OTHER QUANTITY : 1 TABLET(S);?FREQUENCY : TWICE A DAY;?
     Route: 048
  2. ESCITALOPRAM [Concomitant]
     Active Substance: ESCITALOPRAM OXALATE
  3. SODIUM CHORIDE [Concomitant]
  4. HEPARIN [Concomitant]
     Active Substance: HEPARIN SODIUM
  5. FAMOTIDINE [Concomitant]
     Active Substance: FAMOTIDINE
  6. ACETAMINOPHEN [Concomitant]
     Active Substance: ACETAMINOPHEN
  7. HYDROMORPHONE [Concomitant]
     Active Substance: HYDROMORPHONE
  8. IVP SOLUTION [Concomitant]
  9. TROPONIN [Concomitant]
  10. ALPRAZOLAM [Concomitant]
     Active Substance: ALPRAZOLAM
  11. MELATONIN [Concomitant]
     Active Substance: MELATONIN
  12. DOCUSATE [Concomitant]
     Active Substance: DOCUSATE
  13. VITAMINS [Concomitant]
     Active Substance: VITAMINS
  14. ASPIRIN [Concomitant]
     Active Substance: ASPIRIN
  15. MIRALAX [Concomitant]
     Active Substance: POLYETHYLENE GLYCOL 3350
  16. VITAMIN B12 [Concomitant]
     Active Substance: CYANOCOBALAMIN

REACTIONS (2)
  - Dizziness [None]
  - Fall [None]
